FAERS Safety Report 21330636 (Version 1)
Quarter: 2022Q3

REPORT INFORMATION
  Report Type: Spontaneous
  Country: US (occurrence: None)
  Receive Date: 20220913
  Receipt Date: 20220913
  Transmission Date: 20221026
  Serious: No
  Sender: FDA-Public Use
  Company Number: None

PATIENT
  Age: 58 Year
  Sex: Male

DRUGS (1)
  1. LISINOPRIL [Suspect]
     Active Substance: LISINOPRIL
     Indication: Hypertension
     Dosage: FREQUENCY : DAILY;?
     Route: 048
     Dates: start: 20220428, end: 20220528

REACTIONS (6)
  - Angioedema [None]
  - Cough [None]
  - Dysphonia [None]
  - Therapy cessation [None]
  - Mouth swelling [None]
  - Lip swelling [None]

NARRATIVE: CASE EVENT DATE: 20220505
